FAERS Safety Report 7232559-3 (Version None)
Quarter: 2011Q1

REPORT INFORMATION
  Report Type: 
  Country: None (occurrence: None)
  Receive Date: 20110107
  Receipt Date: 20101230
  Transmission Date: 20110831
  Serious: Yes (Hospitalization, Other)
  Sender: FDA-Public Use
  Company Number: WAES 1012USA04327

PATIENT
  Sex: Female

DRUGS (10)
  1. NEXIUM [Concomitant]
  2. PAMELOR [Concomitant]
  3. LASIX [Concomitant]
  4. POTASION CAPSULES [Concomitant]
  5. SOMA [Concomitant]
  6. PRINIVIL [Suspect]
     Indication: PRODUCT USED FOR UNKNOWN INDICATION
     Dosage: PO
     Route: 048
  7. ACTONEL [Concomitant]
  8. BLINDED THERAPY UNK [Suspect]
     Indication: OSTEOARTHRITIS
     Dates: start: 20080808
  9. LIPITOR [Concomitant]
  10. VESICARE [Concomitant]

REACTIONS (1)
  - ANAPHYLACTIC REACTION [None]
